FAERS Safety Report 7476868-1 (Version None)
Quarter: 2011Q2

REPORT INFORMATION
  Report Type: 
  Country: None (occurrence: None)
  Receive Date: 20110512
  Receipt Date: 20090213
  Transmission Date: 20111010
  Serious: Yes (Death, Hospitalization, Other)
  Sender: FDA-Public Use
  Company Number: US-BAYER-200912859NA

PATIENT
  Age: 56 Year
  Sex: Male
  Weight: 145.13 kg

DRUGS (24)
  1. TRASYLOL [Suspect]
     Indication: CORONARY ARTERY BYPASS
     Dosage: 1 ML, INITIAL TEST DOSE
     Route: 042
     Dates: start: 20060928, end: 20060928
  2. HEPARIN [Concomitant]
     Dosage: 3000 U, UNK
     Route: 042
     Dates: start: 20060928
  3. AMIODARONE HCL [Concomitant]
     Dosage: 200 MG, UNK
     Route: 048
     Dates: start: 20061001
  4. MORPHINE [Concomitant]
     Dosage: 10 MG, UNK
     Route: 042
     Dates: start: 20060928
  5. METOPROLOL TARTRATE [Concomitant]
     Dosage: UNK MG, UNK
     Route: 048
     Dates: start: 20060925
  6. LISINOPRIL [Concomitant]
     Dosage: 2.5 MG, UNK
     Route: 048
     Dates: start: 20061001
  7. LOPRESSOR [Concomitant]
     Dosage: 25 MG, UNK
     Route: 048
     Dates: start: 20061001
  8. VERSED [Concomitant]
     Dosage: 10 MG, IVPB
     Dates: start: 20060928
  9. LIDOCAINE [Concomitant]
     Dosage: 100 MG, UNK
     Route: 042
     Dates: start: 20060928
  10. LISINOPRIL [Concomitant]
     Indication: HYPERTENSION
     Dosage: 40 MG, QD
     Route: 048
  11. WARFARIN SODIUM [Concomitant]
     Dosage: 3 MG, UNK
     Route: 048
  12. TRASYLOL [Suspect]
     Dosage: 50CC/HR INFUSION
     Route: 042
     Dates: start: 20060928, end: 20060928
  13. ACETYLSALICYLIC ACID SRT [Concomitant]
     Dosage: 325 MG, UNK
     Route: 048
  14. PLAVIX [Concomitant]
     Indication: ACUTE MYOCARDIAL INFARCTION
     Dosage: UNK
     Dates: start: 20060925, end: 20060926
  15. PROPOFOL [Concomitant]
     Dosage: 1000 MG, IVPB
     Dates: start: 20060928
  16. PANCURONIUM BROMIDE [Concomitant]
     Dosage: 3 MG, UNK
     Route: 042
     Dates: start: 20060928
  17. DOBUTAMINE HYDROCHLORIDE [Concomitant]
     Dosage: 250 MG, IVPB
     Dates: start: 20060928
  18. TRASYLOL [Suspect]
     Dosage: 200ML PUMP PRIME LOADING DOSE
     Route: 042
     Dates: start: 20060928, end: 20060928
  19. FENTANYL [Concomitant]
     Dosage: 250 MCG
     Route: 042
     Dates: start: 20060928
  20. CARDIZEM [Concomitant]
     Indication: SUPRAVENTRICULAR TACHYCARDIA
     Dosage: INFUSION
     Route: 042
     Dates: start: 20060926
  21. CARDIZEM [Concomitant]
     Indication: HYPERTENSION
     Dosage: 15 MG, BID
     Route: 048
  22. HEPARIN [Concomitant]
     Dosage: UNK
     Route: 042
     Dates: start: 20060925
  23. ADENOCARD [Concomitant]
     Indication: SUPRAVENTRICULAR TACHYCARDIA
     Dosage: 2 DOSES
     Route: 042
     Dates: start: 20060925, end: 20060925
  24. LASIX [Concomitant]
     Dosage: 40 MG, UNK
     Route: 048
     Dates: start: 20061001

REACTIONS (6)
  - RENAL INJURY [None]
  - UNEVALUABLE EVENT [None]
  - RENAL FAILURE [None]
  - RENAL FAILURE ACUTE [None]
  - INJURY [None]
  - PAIN [None]
